FAERS Safety Report 7398287-9 (Version None)
Quarter: 2011Q2

REPORT INFORMATION
  Report Type: 
  Country: None (occurrence: None)
  Receive Date: 20110406
  Receipt Date: 20110323
  Transmission Date: 20111010
  Serious: Yes (Other)
  Sender: FDA-Public Use
  Company Number: SG-BAYER-2011-025711

PATIENT
  Age: 37 Year
  Sex: Male

DRUGS (2)
  1. DICLOFENAC [Suspect]
     Route: 048
  2. ASPIRIN [Suspect]

REACTIONS (1)
  - ANGIOEDEMA [None]
